FAERS Safety Report 13679787 (Version 1)
Quarter: 2017Q2

REPORT INFORMATION
  Report Type: Spontaneous
  Country: US (occurrence: US)
  Receive Date: 20170622
  Receipt Date: 20170622
  Transmission Date: 20170830
  Serious: Yes (Life-Threatening, Hospitalization, Other)
  Sender: FDA-Public Use
  Company Number: US-BRISTOL-MYERS SQUIBB COMPANY-BMS-2017-054808

PATIENT
  Age: 37 Year
  Sex: Female

DRUGS (1)
  1. IPILIMUMAB [Suspect]
     Active Substance: IPILIMUMAB
     Indication: METASTATIC MALIGNANT MELANOMA
     Dosage: 10 MG/KG, UNK
     Route: 065
     Dates: start: 201607

REACTIONS (10)
  - Guillain-Barre syndrome [Unknown]
  - Ileocolostomy [Unknown]
  - Laparotomy [Unknown]
  - Prescribed overdose [Unknown]
  - Ileocolectomy [Unknown]
  - Pruritus [Unknown]
  - Enterocolitis [Unknown]
  - Small intestinal obstruction [Unknown]
  - Rash generalised [Unknown]
  - Ileostomy [Unknown]
